FAERS Safety Report 19192936 (Version 1)
Quarter: 2021Q2

REPORT INFORMATION
  Report Type: Spontaneous
  Country: US (occurrence: US)
  Receive Date: 20210429
  Receipt Date: 20210429
  Transmission Date: 20210717
  Serious: Yes (Death, Hospitalization, Other)
  Sender: FDA-Public Use
  Company Number: US-SA-2021SA139350

PATIENT
  Age: 58 Year
  Sex: Male

DRUGS (4)
  1. ALTEPLASE. [Suspect]
     Active Substance: ALTEPLASE
     Indication: CARDIAC VENTRICULAR THROMBOSIS
     Dosage: 50 MG (ON DAY 20)
  2. HEPARIN [Suspect]
     Active Substance: HEPARIN SODIUM
     Route: 041
  3. HEPARIN [Suspect]
     Active Substance: HEPARIN SODIUM
     Dosage: 5000 U, BID
  4. ENOXAPARIN SODIUM. [Suspect]
     Active Substance: ENOXAPARIN SODIUM
     Indication: PROPHYLAXIS

REACTIONS (16)
  - Right ventricular dilatation [Fatal]
  - Acute respiratory distress syndrome [Fatal]
  - Plasmacytosis [Fatal]
  - Arterial thrombosis [Fatal]
  - Septic shock [Fatal]
  - Pulmonary oedema [Fatal]
  - Pulmonary embolism [Fatal]
  - Thrombocytopenia [Fatal]
  - Thrombophlebitis superficial [Fatal]
  - Multiple organ dysfunction syndrome [Fatal]
  - Drug ineffective [Fatal]
  - Venous thrombosis [Fatal]
  - Cardiac ventricular thrombosis [Fatal]
  - Myocarditis [Fatal]
  - Disease progression [Fatal]
  - Fibrin D dimer increased [Fatal]
